FAERS Safety Report 7009956-4 (Version None)
Quarter: 2010Q3

REPORT INFORMATION
  Report Type: 
  Country: None (occurrence: None)
  Receive Date: 20100923
  Receipt Date: 20100910
  Transmission Date: 20110219
  Serious: Yes (Hospitalization)
  Sender: FDA-Public Use
  Company Number: FR-SANOFI-AVENTIS-2010SA054626

PATIENT
  Age: 59 Year
  Sex: Female

DRUGS (5)
  1. LOVENOX [Suspect]
     Route: 058
     Dates: start: 20100319, end: 20100323
  2. MARCAINE /NET/ [Suspect]
     Route: 037
     Dates: start: 20100319
  3. MORPHINE [Concomitant]
     Route: 065
     Dates: start: 20100301
  4. ESTROGEL [Concomitant]
     Route: 003
  5. UTROGESTAN [Concomitant]
     Route: 065

REACTIONS (2)
  - HEPATIC ENZYME INCREASED [None]
  - HEPATITIS ACUTE [None]
